FAERS Safety Report 8470434-7 (Version None)
Quarter: 2012Q2

REPORT INFORMATION
  Report Type: 
  Country: None (occurrence: None)
  Receive Date: 20120627
  Receipt Date: 20120613
  Transmission Date: 20120825
  Serious: Yes (Hospitalization)
  Sender: FDA-Public Use
  Company Number: PL-MYLANLABS-2012S1012254

PATIENT
  Age: 8 Year
  Sex: Male

DRUGS (2)
  1. AMOXICILLIN AND CLAVULANATE POTASSIUM [Interacting]
     Indication: UPPER RESPIRATORY TRACT INFECTION
     Dosage: AMOXICILLIN 25 MG/KG/DAY, CLAVULANIC ACID 3.6 MG/KG/DAY
     Route: 065
  2. TACROLIMUS [Suspect]
     Indication: IMMUNOSUPPRESSION
     Route: 065

REACTIONS (2)
  - CHOLESTATIC LIVER INJURY [None]
  - DRUG INTERACTION [None]
